FAERS Safety Report 22748522 (Version 12)
Quarter: 2025Q1

REPORT INFORMATION
  Report Type: Spontaneous
  Country: US (occurrence: US)
  Receive Date: 20230725
  Receipt Date: 20250120
  Transmission Date: 20250409
  Serious: No
  Sender: SANOFI AVENTIS
  Company Number: US-SANOFI-01676726

PATIENT
  Age: 71 Year
  Sex: Female

DRUGS (3)
  1. DUPIXENT [Suspect]
     Active Substance: DUPILUMAB
     Indication: Neurodermatitis
     Route: 058
     Dates: start: 202306, end: 202306
  2. DUPIXENT [Suspect]
     Active Substance: DUPILUMAB
     Indication: Eczema nummular
     Dosage: 300 MG, QOW
     Route: 058
     Dates: start: 2023
  3. TRULICITY [Concomitant]
     Active Substance: DULAGLUTIDE

REACTIONS (25)
  - Abdominal discomfort [Unknown]
  - Vomiting [Unknown]
  - Rash vesicular [Unknown]
  - Condition aggravated [Unknown]
  - Gastrooesophageal reflux disease [Unknown]
  - Condition aggravated [Unknown]
  - Memory impairment [Unknown]
  - Vomiting [Unknown]
  - Bone pain [Unknown]
  - Gait disturbance [Unknown]
  - Burning sensation [Unknown]
  - Pain [Unknown]
  - Injection site urticaria [Unknown]
  - Pruritus [Unknown]
  - Vision blurred [Not Recovered/Not Resolved]
  - Neurodermatitis [Unknown]
  - Drug ineffective [Unknown]
  - Skin ulcer [Unknown]
  - Arthralgia [Unknown]
  - Eye pruritus [Unknown]
  - Conjunctivitis [Unknown]
  - Injection site pain [Unknown]
  - Injection site erythema [Unknown]
  - Therapeutic response decreased [Unknown]
  - Inappropriate schedule of product administration [Unknown]

NARRATIVE: CASE EVENT DATE: 20230101
